FAERS Safety Report 8617320-7 (Version None)
Quarter: 2012Q3

REPORT INFORMATION
  Report Type: 
  Country: None (occurrence: None)
  Receive Date: 20120823
  Receipt Date: 20120815
  Transmission Date: 20120928
  Serious: No
  Sender: FDA-Public Use
  Company Number: US-ASTRAZENECA-2012SE57846

PATIENT
  Sex: Female

DRUGS (19)
  1. VITAMIN E [Concomitant]
  2. MIRALAX [Concomitant]
  3. BUMEX [Concomitant]
  4. ATIVAN [Concomitant]
  5. ASCORBIC ACID [Concomitant]
  6. PROVENTIL [Concomitant]
  7. NEXIUM [Suspect]
     Route: 048
  8. NASONEX [Concomitant]
  9. MYCOSTATIN [Concomitant]
  10. NORCO [Concomitant]
  11. LEVOTHYROID, SYNTHROID [Concomitant]
  12. CLARITIN [Concomitant]
  13. ASPIRIN [Concomitant]
  14. EXFORGE [Concomitant]
  15. LONGS VITAMIN D [Concomitant]
  16. TOPROL-XL [Suspect]
     Route: 048
  17. ADVAIR DISKUS 100/50 [Concomitant]
  18. CALCIUM CARB-D3-MAG CMB11-ZINC [Concomitant]
  19. GINKGO BILOBA [Concomitant]

REACTIONS (16)
  - RESTLESS LEGS SYNDROME [None]
  - OFF LABEL USE [None]
  - NEUROPATHY PERIPHERAL [None]
  - ASTHMA [None]
  - BACK PAIN [None]
  - HYPOTHYROIDISM [None]
  - ANXIETY [None]
  - CELLULITIS [None]
  - CHRONIC OBSTRUCTIVE PULMONARY DISEASE [None]
  - LIGAMENT SPRAIN [None]
  - OEDEMA PERIPHERAL [None]
  - GASTROOESOPHAGEAL REFLUX DISEASE [None]
  - HAEMORRHOIDS [None]
  - PNEUMONIA [None]
  - DEPRESSION [None]
  - ESSENTIAL HYPERTENSION [None]
